FAERS Safety Report 15869323 (Version 4)
Quarter: 2020Q2

REPORT INFORMATION
  Report Type: Spontaneous
  Country: BR (occurrence: BR)
  Receive Date: 20190125
  Receipt Date: 20200605
  Transmission Date: 20200713
  Serious: Yes (Other)
  Sender: FDA-Public Use
  Company Number: BR-ELI_LILLY_AND_COMPANY-BR201901010200

PATIENT
  Age: 71 Year
  Sex: Female

DRUGS (2)
  1. FORTEO [Suspect]
     Active Substance: TERIPARATIDE
     Indication: OSTEOPOROSIS
     Dosage: UNK, DAILY
     Route: 065
     Dates: start: 20181212
  2. HUMIRA [Concomitant]
     Active Substance: ADALIMUMAB
     Indication: ARTHRITIS

REACTIONS (10)
  - Tendon rupture [Unknown]
  - Dysstasia [Unknown]
  - Gait disturbance [Unknown]
  - Suicidal ideation [Unknown]
  - Muscle rupture [Unknown]
  - Muscular weakness [Unknown]
  - Muscle atrophy [Recovering/Resolving]
  - Fall [Recovering/Resolving]
  - Drug ineffective [Unknown]
  - Movement disorder [Unknown]

NARRATIVE: CASE EVENT DATE: 201902
